FAERS Safety Report 5940896-5 (Version None)
Quarter: 2008Q4

REPORT INFORMATION
  Report Type: 
  Country: None (occurrence: None)
  Receive Date: 20081104
  Receipt Date: 20081022
  Transmission Date: 20090506
  Serious: Yes (Hospitalization, Other)
  Sender: FDA-Public Use
  Company Number: US-ELI_LILLY_AND_COMPANY-US200810005287

PATIENT
  Sex: Male
  Weight: 108.39 kg

DRUGS (6)
  1. BYETTA [Suspect]
     Indication: TYPE 2 DIABETES MELLITUS
     Dosage: 5 UG, 2/D
     Route: 058
     Dates: start: 20060101, end: 20070801
  2. LEVEMIR [Concomitant]
     Indication: TYPE 2 DIABETES MELLITUS
     Dosage: 57 U, DAILY (1/D)
  3. LIPITOR [Concomitant]
     Indication: BLOOD CHOLESTEROL
     Dosage: 80 MG, DAILY (1/D)
  4. PREVACID [Concomitant]
     Indication: GASTRIC DISORDER
     Dosage: 30 MG, DAILY (1/D)
  5. ASPIRIN [Concomitant]
     Indication: CARDIAC DISORDER
     Dosage: 81 MG, 2/D
  6. METOPROLOL TARTRATE [Concomitant]
     Indication: CARDIAC DISORDER
     Dosage: 150 MG, DAILY (1/D)

REACTIONS (8)
  - AORTIC ANEURYSM [None]
  - FALL [None]
  - HAEMATEMESIS [None]
  - HALLUCINATION [None]
  - MEMORY IMPAIRMENT [None]
  - MYOCARDIAL INFARCTION [None]
  - RENAL DISORDER [None]
  - TRANSFUSION [None]
